FAERS Safety Report 9535499 (Version 2)
Quarter: 2013Q4

REPORT INFORMATION
  Report Type: Spontaneous
  Country: AU (occurrence: AU)
  Receive Date: 20130918
  Receipt Date: 20131130
  Transmission Date: 20140711
  Serious: Yes (Other)
  Sender: FDA-Public Use
  Company Number: AU-009507513-1309AUS007804

PATIENT
  Age: 54 Year
  Sex: Male

DRUGS (2)
  1. RIBAVIRIN [Suspect]
     Indication: HEPATITIS C
     Dosage: DAILY 1000 MG
     Route: 048
     Dates: start: 2003
  2. PEGINTRON [Suspect]
     Indication: HEPATITIS C
     Dosage: DOSE UNSPECIFIED
     Dates: start: 2003

REACTIONS (11)
  - Multi-organ failure [Unknown]
  - Liver transplant [Unknown]
  - Liver transplant [Unknown]
  - Hepatocellular carcinoma [Unknown]
  - Hepatic cirrhosis [Recovered/Resolved]
  - Hypertension [Unknown]
  - No therapeutic response [Unknown]
  - Hip arthroplasty [Unknown]
  - Hip fracture [Unknown]
  - Knee arthroplasty [Unknown]
  - Obesity [Unknown]
